FAERS Safety Report 10874700 (Version 3)
Quarter: 2015Q2

REPORT INFORMATION
  Report Type: Spontaneous
  Country: US (occurrence: US)
  Receive Date: 20150227
  Receipt Date: 20150608
  Transmission Date: 20150821
  Serious: Yes (Hospitalization, Other)
  Sender: FDA-Public Use
  Company Number: US-BAYER-2015-029561

PATIENT
  Age: 23 Year
  Sex: Female

DRUGS (2)
  1. MIRENA [Suspect]
     Active Substance: LEVONORGESTREL
     Indication: CONTRACEPTION
     Dosage: 20 MCG/24HR, CONT
     Route: 015
     Dates: start: 20121012, end: 20140429
  2. TRINESSA [Concomitant]
     Active Substance: ETHINYL ESTRADIOL\NORGESTIMATE

REACTIONS (10)
  - Uterine perforation [Not Recovered/Not Resolved]
  - Embedded device [None]
  - Injury [Not Recovered/Not Resolved]
  - Device difficult to use [None]
  - Complication of device removal [None]
  - Abdominal pain [Not Recovered/Not Resolved]
  - Scar [None]
  - Peritoneal adhesions [None]
  - Menorrhagia [None]
  - Device breakage [None]

NARRATIVE: CASE EVENT DATE: 201211
